FAERS Safety Report 18783477 (Version 2)
Quarter: 2021Q1

REPORT INFORMATION
  Report Type: Spontaneous
  Country: US (occurrence: US)
  Receive Date: 20210125
  Receipt Date: 20210201
  Transmission Date: 20210419
  Serious: Yes (Other)
  Sender: FDA-Public Use
  Company Number: US-PFIZER INC-2021046369

PATIENT
  Age: 38 Year
  Sex: Female
  Weight: 62.15 kg

DRUGS (1)
  1. DEPO?PROVERA [Suspect]
     Active Substance: MEDROXYPROGESTERONE ACETATE
     Indication: CONTRACEPTION
     Dosage: 150 MG (DOSE: EVERY 2?3 MONTHS) (150MG INTRAMUSCULAR INJECTION TO RIGHT ARM)
     Route: 030
     Dates: start: 2016, end: 20191216

REACTIONS (16)
  - Muscle contracture [Unknown]
  - Injection site discolouration [Unknown]
  - Injury [Unknown]
  - Injection site pain [Unknown]
  - Muscle strain [Unknown]
  - Pain in extremity [Recovering/Resolving]
  - Skin necrosis [Unknown]
  - Injection site bruising [Unknown]
  - Skin hypertrophy [Unknown]
  - Myositis [Unknown]
  - Cyst [Unknown]
  - Hypoaesthesia [Unknown]
  - Keloid scar [Unknown]
  - Oedema peripheral [Unknown]
  - Peripheral swelling [Recovering/Resolving]
  - Off label use [Unknown]

NARRATIVE: CASE EVENT DATE: 20191216
